FAERS Safety Report 9633391 (Version 1)
Quarter: 2013Q4

REPORT INFORMATION
  Report Type: Spontaneous
  Country: US (occurrence: US)
  Receive Date: 20131021
  Receipt Date: 20131021
  Transmission Date: 20140711
  Serious: No
  Sender: FDA-Public Use
  Company Number: US-BRISTOL-MYERS SQUIBB COMPANY-19158203

PATIENT
  Age: 7 Decade
  Sex: Female

DRUGS (1)
  1. YERVOY [Suspect]
     Dates: start: 201307

REACTIONS (1)
  - Blood glucose decreased [Unknown]
